FAERS Safety Report 16304194 (Version 5)
Quarter: 2021Q1

REPORT INFORMATION
  Report Type: Report from Study
  Country: JP (occurrence: JP)
  Receive Date: 20190507
  Receipt Date: 20210209
  Transmission Date: 20210419
  Serious: Yes (Hospitalization)
  Sender: FDA-Public Use
  Company Number: JP-BIOCODEX SA-201800653

PATIENT

DRUGS (56)
  1. DIACOMIT [Suspect]
     Active Substance: STIRIPENTOL
     Dosage: 450 MG, QD
     Route: 048
     Dates: end: 20200610
  2. CLOBAZAM. [Concomitant]
     Active Substance: CLOBAZAM
     Dosage: 8 MG, QD
     Route: 048
     Dates: start: 20190628, end: 20190902
  3. CLOBAZAM. [Concomitant]
     Active Substance: CLOBAZAM
     Dosage: 12 MG, QD
     Route: 048
     Dates: end: 20200610
  4. SODIUM VALPROATE [Concomitant]
     Active Substance: VALPROATE SODIUM
     Dosage: 125 MG, QD
     Route: 048
     Dates: start: 20171221, end: 20180207
  5. SODIUM VALPROATE [Concomitant]
     Active Substance: VALPROATE SODIUM
     Dosage: 200 MG, QD
     Route: 048
     Dates: start: 20181206
  6. SODIUM VALPROATE [Concomitant]
     Active Substance: VALPROATE SODIUM
     Dosage: 200 MG, QD
     Route: 048
     Dates: start: 20190628, end: 20190902
  7. SODIUM VALPROATE [Concomitant]
     Active Substance: VALPROATE SODIUM
     Dosage: 200 MG, QD
     Route: 048
     Dates: end: 20200108
  8. DORMICUM [Concomitant]
     Dosage: 3 MG, UNK
     Route: 041
     Dates: start: 20170825, end: 20170825
  9. DORMICUM [Concomitant]
     Dosage: 0.1?0.20 MG/KG/H
     Route: 041
     Dates: start: 20181106, end: 20181110
  10. DIACOMIT [Suspect]
     Active Substance: STIRIPENTOL
     Indication: SEVERE MYOCLONIC EPILEPSY OF INFANCY
     Dosage: 75 MG, QD
     Route: 048
     Dates: start: 20170802, end: 20170816
  11. CLOBAZAM. [Concomitant]
     Active Substance: CLOBAZAM
     Dosage: 8 MG, QD
     Route: 048
     Dates: end: 20200205
  12. CLOBAZAM. [Concomitant]
     Active Substance: CLOBAZAM
     Dosage: 11 MG, QD
     Route: 048
     Dates: end: 20200513
  13. CLOBAZAM. [Concomitant]
     Active Substance: CLOBAZAM
     Dosage: 13 MG, QD
     Route: 048
  14. SODIUM VALPROATE [Concomitant]
     Active Substance: VALPROATE SODIUM
     Dosage: 230 MG, QD
     Route: 048
     Dates: end: 20200311
  15. DORMICUM [Concomitant]
     Indication: SEVERE MYOCLONIC EPILEPSY OF INFANCY
     Dosage: 0.6 MG, UNK
     Route: 041
     Dates: start: 20170823, end: 20170823
  16. DORMICUM [Concomitant]
     Dosage: 1.5 MG, UNK
     Route: 041
     Dates: start: 20180825, end: 20180826
  17. DIACOMIT [Suspect]
     Active Substance: STIRIPENTOL
     Dosage: 100 MG, QD
     Route: 048
     Dates: start: 20170824, end: 20171115
  18. DIACOMIT [Suspect]
     Active Substance: STIRIPENTOL
     Dosage: 600 MG, QD
     Route: 048
  19. CLOBAZAM. [Concomitant]
     Active Substance: CLOBAZAM
     Dosage: 8 MG, QD
     Route: 048
     Dates: start: 20181219
  20. DORMICUM [Concomitant]
     Dosage: 0.1?0.30MG/KG/H
     Route: 041
     Dates: start: 20180925, end: 20180930
  21. LEVOCARNITINE. [Concomitant]
     Active Substance: LEVOCARNITINE
     Indication: PROPHYLAXIS
     Dosage: 2.5 ML, QD
     Route: 048
  22. LEVOCARNITINE. [Concomitant]
     Active Substance: LEVOCARNITINE
     Dosage: 2.5 ML, QD
     Route: 048
  23. CLOBAZAM. [Concomitant]
     Active Substance: CLOBAZAM
     Dosage: 7 MG, QD
     Route: 048
     Dates: start: 20180829, end: 20181218
  24. CLOBAZAM. [Concomitant]
     Active Substance: CLOBAZAM
     Dosage: 6 MG, QD
     Route: 048
     Dates: end: 20190627
  25. DORMICUM [Concomitant]
     Dosage: 2 MG, UNK
     Route: 041
     Dates: start: 20170826, end: 20170828
  26. DORMICUM [Concomitant]
     Dosage: 0.1?0.15 MG/KG/H
     Route: 041
     Dates: start: 20181206, end: 20181207
  27. DORMICUM [Concomitant]
     Dosage: 0.1?0.15MG/KG/H
     Route: 041
     Dates: start: 20190215, end: 20190217
  28. DORMICUM [Concomitant]
     Dosage: 3ML/H IN 1 HOUR
     Dates: start: 20200624, end: 20200624
  29. DIACOMIT [Suspect]
     Active Substance: STIRIPENTOL
     Dosage: 200 MG, QD
     Route: 048
     Dates: start: 20171221, end: 20180207
  30. SODIUM VALPROATE [Concomitant]
     Active Substance: VALPROATE SODIUM
     Indication: SEVERE MYOCLONIC EPILEPSY OF INFANCY
     Dosage: 200 MG, QD
     Route: 048
     Dates: end: 20170816
  31. SODIUM VALPROATE [Concomitant]
     Active Substance: VALPROATE SODIUM
     Dosage: 100 MG, QD
     Route: 048
     Dates: end: 20171220
  32. DORMICUM [Concomitant]
     Dosage: 1.4 MG, UNK
     Route: 041
     Dates: start: 20170824, end: 20170824
  33. DORMICUM [Concomitant]
     Dosage: 1 MG, UNK
     Route: 041
     Dates: start: 20180826, end: 20180828
  34. DIACOMIT [Suspect]
     Active Substance: STIRIPENTOL
     Dosage: 225 MG, QD
     Route: 048
     Dates: start: 20180208, end: 20180314
  35. DIACOMIT [Suspect]
     Active Substance: STIRIPENTOL
     Dosage: 450 MG, QD
     Route: 048
     Dates: start: 20181002
  36. CLOBAZAM. [Concomitant]
     Active Substance: CLOBAZAM
     Dosage: 4.5 MG, QD
     Route: 048
     Dates: start: 20170706, end: 20170717
  37. SODIUM VALPROATE [Concomitant]
     Active Substance: VALPROATE SODIUM
     Dosage: 150 MG, QD
     Route: 048
     Dates: end: 20190627
  38. SODIUM VALPROATE [Concomitant]
     Active Substance: VALPROATE SODIUM
     Dosage: 250 MG, QD
     Route: 048
  39. DORMICUM [Concomitant]
     Dosage: 2 MG, UNK
     Route: 041
     Dates: start: 20170824, end: 20170824
  40. DIACOMIT [Suspect]
     Active Substance: STIRIPENTOL
     Dosage: 275 MG, QD
     Route: 048
     Dates: start: 20180315, end: 20180418
  41. DIACOMIT [Suspect]
     Active Substance: STIRIPENTOL
     Dosage: 350 MG, QD
     Route: 048
     Dates: start: 20180610, end: 20181001
  42. CLOBAZAM. [Concomitant]
     Active Substance: CLOBAZAM
     Indication: SEVERE MYOCLONIC EPILEPSY OF INFANCY
     Dosage: 3 MG, QD
     Route: 048
     Dates: end: 20170705
  43. CLOBAZAM. [Concomitant]
     Active Substance: CLOBAZAM
     Dosage: 6.5 MG, QD
     Route: 048
     Dates: start: 20170718, end: 20180828
  44. SODIUM VALPROATE [Concomitant]
     Active Substance: VALPROATE SODIUM
     Dosage: 150 MG, QD
     Route: 048
     Dates: start: 20170817, end: 20171011
  45. FERRIC PYROPHOSPHATE, SOLUBLE [Concomitant]
     Indication: PRODUCT USED FOR UNKNOWN INDICATION
     Dosage: 4 ML
     Route: 048
     Dates: end: 20180211
  46. DORMICUM [Concomitant]
     Dosage: 0.7 MG, UNK
     Route: 041
     Dates: start: 20170823, end: 20170824
  47. DORMICUM [Concomitant]
     Dosage: 2 MG, UNK
     Dates: start: 20190624, end: 20190624
  48. DIAZEPAM. [Concomitant]
     Active Substance: DIAZEPAM
     Indication: SEVERE MYOCLONIC EPILEPSY OF INFANCY
     Dosage: 4MG AS NEEDED
     Route: 065
     Dates: start: 20170823, end: 20170823
  49. DIACOMIT [Suspect]
     Active Substance: STIRIPENTOL
     Dosage: 150 MG, QD
     Route: 048
     Dates: start: 20171116, end: 20171220
  50. DIACOMIT [Suspect]
     Active Substance: STIRIPENTOL
     Dosage: 325 MG, QD
     Route: 048
     Dates: start: 20180419, end: 20180609
  51. DIACOMIT [Suspect]
     Active Substance: STIRIPENTOL
     Dosage: 450 MG, QD
     Route: 048
     Dates: start: 20190628, end: 20190902
  52. CLOBAZAM. [Concomitant]
     Active Substance: CLOBAZAM
     Dosage: 9 MG, QD
     Route: 048
     Dates: end: 20200408
  53. SODIUM VALPROATE [Concomitant]
     Active Substance: VALPROATE SODIUM
     Dosage: 150 MG, QD
     Route: 048
     Dates: start: 20180208, end: 20181205
  54. DORMICUM [Concomitant]
     Dosage: 2 MG, UNK
     Route: 041
     Dates: start: 20170824, end: 20170825
  55. DORMICUM [Concomitant]
     Dosage: 0.1?0.2 MG/KG/H
     Route: 041
     Dates: end: 20180803
  56. DORMICUM [Concomitant]
     Dosage: 3 MG, UNK
     Route: 041
     Dates: start: 20190624, end: 20190624

REACTIONS (1)
  - Seizure cluster [Recovering/Resolving]

NARRATIVE: CASE EVENT DATE: 20170823
